FAERS Safety Report 9180666 (Version 1)
Quarter: 2013Q1

REPORT INFORMATION
  Report Type: Spontaneous
  Country: DE (occurrence: DE)
  Receive Date: 20130322
  Receipt Date: 20130322
  Transmission Date: 20140127
  Serious: Yes (Other)
  Sender: FDA-Public Use
  Company Number: DE-ELI_LILLY_AND_COMPANY-DE201303004284

PATIENT
  Sex: Female

DRUGS (9)
  1. FORSTEO [Suspect]
     Indication: OSTEOPOROSIS
     Dosage: UNK, QD
     Route: 058
     Dates: start: 20110912
  2. LYRICA [Concomitant]
     Dosage: UNK, UNKNOWN
     Route: 065
  3. ASS [Concomitant]
     Dosage: UNK UNK, UNKNOWN
     Route: 065
  4. PENTALONG [Concomitant]
     Dosage: UNK, UNKNOWN
     Route: 065
  5. TORASEMID [Concomitant]
     Dosage: UNK, UNKNOWN
     Route: 065
  6. PANTOPRAZOLE [Concomitant]
     Dosage: UNK, UNKNOWN
     Route: 065
  7. JUNIK [Concomitant]
     Dosage: UNK, UNKNOWN
     Route: 065
  8. DICLOFENAC [Concomitant]
     Dosage: UNK, UNKNOWN
     Route: 065
  9. CALCIGEN [Concomitant]
     Dosage: UNK, UNKNOWN
     Route: 065

REACTIONS (2)
  - Cerebrovascular accident [Unknown]
  - Diplopia [Not Recovered/Not Resolved]
